FAERS Safety Report 15844454 (Version 2)
Quarter: 2019Q1

REPORT INFORMATION
  Report Type: Report from Study
  Country: US (occurrence: US)
  Receive Date: 20190118
  Receipt Date: 20190212
  Transmission Date: 20190417
  Serious: Yes (Hospitalization)
  Sender: FDA-Public Use
  Company Number: US-ACTELION-A-US2018-181793

PATIENT
  Age: 75 Year
  Sex: Male

DRUGS (2)
  1. OXYGEN. [Concomitant]
     Active Substance: OXYGEN
  2. OPSUMIT [Suspect]
     Active Substance: MACITENTAN
     Indication: PULMONARY ARTERIAL HYPERTENSION
     Dosage: 10 MG, UNK
     Route: 048

REACTIONS (9)
  - Urinary retention [Unknown]
  - Arthralgia [Unknown]
  - Contusion [Unknown]
  - Oxygen therapy [Unknown]
  - Fall [Unknown]
  - Loss of consciousness [Unknown]
  - Back pain [Unknown]
  - Head injury [Unknown]
  - Dizziness [Unknown]
